FAERS Safety Report 6905471-4 (Version None)
Quarter: 2010Q3

REPORT INFORMATION
  Report Type: 
  Country: None (occurrence: None)
  Receive Date: 20100804
  Receipt Date: 20100723
  Transmission Date: 20110219
  Serious: Yes (Other)
  Sender: FDA-Public Use
  Company Number: PHHY2010CA48266

PATIENT
  Sex: Female

DRUGS (3)
  1. CLOZARIL [Suspect]
     Indication: SCHIZOPHRENIA
     Dosage: 225 MG, QD
     Route: 048
     Dates: start: 20051212
  2. RISPERIDONE [Concomitant]
     Dosage: 2 MG, QHS
  3. YASMIN [Concomitant]

REACTIONS (5)
  - COUGH [None]
  - HODGKIN'S DISEASE [None]
  - MEDIASTINAL MASS [None]
  - NAUSEA [None]
  - VOMITING [None]
